FAERS Safety Report 9586172 (Version 1)
Quarter: 2013Q4

REPORT INFORMATION
  Report Type: Spontaneous
  Country: US (occurrence: None)
  Receive Date: 20131002
  Receipt Date: 20131002
  Transmission Date: 20140711
  Serious: No
  Sender: FDA-Public Use
  Company Number: None

PATIENT
  Sex: Female

DRUGS (1)
  1. HUMIRA 40MG ABBVIE [Suspect]
     Indication: ENTERITIS
     Dosage: ONCE WEEKLY
     Route: 048
     Dates: start: 20120802

REACTIONS (1)
  - Abdominal pain [None]
